FAERS Safety Report 25616728 (Version 1)
Quarter: 2025Q3

REPORT INFORMATION
  Report Type: Spontaneous
  Country: US (occurrence: US)
  Receive Date: 20250729
  Receipt Date: 20250729
  Transmission Date: 20251020
  Serious: Yes (Hospitalization)
  Sender: MYLAN
  Company Number: US-MYLANLABS-2025M1061467

PATIENT
  Age: 89 Year
  Sex: Female

DRUGS (8)
  1. COLCHICINE [Suspect]
     Active Substance: COLCHICINE
     Indication: Pericardial effusion
     Dosage: 0.3 MILLIGRAM, BID
  2. COLCHICINE [Suspect]
     Active Substance: COLCHICINE
     Dosage: 0.3 MILLIGRAM, BID
     Route: 065
  3. COLCHICINE [Suspect]
     Active Substance: COLCHICINE
     Dosage: 0.3 MILLIGRAM, BID
     Route: 065
  4. COLCHICINE [Suspect]
     Active Substance: COLCHICINE
     Dosage: 0.3 MILLIGRAM, BID
  5. METHYLPREDNISOLONE [Concomitant]
     Active Substance: METHYLPREDNISOLONE
     Indication: Pericarditis
  6. METHYLPREDNISOLONE [Concomitant]
     Active Substance: METHYLPREDNISOLONE
     Route: 065
  7. METHYLPREDNISOLONE [Concomitant]
     Active Substance: METHYLPREDNISOLONE
     Route: 065
  8. METHYLPREDNISOLONE [Concomitant]
     Active Substance: METHYLPREDNISOLONE

REACTIONS (2)
  - Eosinophilic pleural effusion [Recovering/Resolving]
  - Off label use [Unknown]
